FAERS Safety Report 7869668-1 (Version None)
Quarter: 2011Q4

REPORT INFORMATION
  Report Type: 
  Country: None (occurrence: None)
  Receive Date: 20111028
  Receipt Date: 20110106
  Transmission Date: 20120403
  Serious: No
  Sender: FDA-Public Use
  Company Number: US-AMGEN-USASP2011000966

PATIENT
  Age: 63 Year

DRUGS (9)
  1. DOXYCYCLINE [Concomitant]
     Dosage: 20 MG, UNK
  2. ACTOPLUS MET [Concomitant]
  3. ENBREL [Suspect]
     Indication: PRODUCT USED FOR UNKNOWN INDICATION
     Dosage: 50 MG, QWK
  4. LIPITOR [Concomitant]
     Dosage: 10 MG, QID
  5. HYDROCODONE BITARTRATE [Concomitant]
  6. METHOTREXATE [Concomitant]
     Dosage: 2.5 MG, UNK
  7. FISH OIL [Concomitant]
     Dosage: 1000 MG, UNK
  8. SINGULAIR [Concomitant]
     Dosage: 5 MG, UNK
  9. ASPIRIN [Concomitant]

REACTIONS (1)
  - UPPER RESPIRATORY TRACT INFECTION [None]
